FAERS Safety Report 5274305-9 (Version None)
Quarter: 2007Q1

REPORT INFORMATION
  Report Type: 
  Country: None (occurrence: None)
  Receive Date: 20070323
  Receipt Date: 20070312
  Transmission Date: 20070707
  Serious: Yes (Other)
  Sender: FDA-Public Use
  Company Number: US-SANOFI-SYNTHELABO-A03200702158

PATIENT
  Sex: Male

DRUGS (1)
  1. AMBIEN [Suspect]
     Indication: SLEEP DISORDER
     Route: 048
     Dates: start: 20061024, end: 20061108

REACTIONS (2)
  - IMPAIRED DRIVING ABILITY [None]
  - SLEEP WALKING [None]
